FAERS Safety Report 5158119-6 (Version None)
Quarter: 2006Q4

REPORT INFORMATION
  Report Type: 
  Country: None (occurrence: None)
  Receive Date: 20061117
  Receipt Date: 20061031
  Transmission Date: 20070319
  Serious: Yes (Death)
  Sender: FDA-Public Use
  Company Number: 2006EU002933

PATIENT
  Age: 66 Year
  Sex: Male
  Weight: 76 kg

DRUGS (14)
  1. PROGRAF [Suspect]
     Indication: GRAFT VERSUS HOST DISEASE
     Dosage: 0 MG, D, ORAL; MG, D, ORAL; 2 MG, BID, ORAL
     Route: 048
     Dates: start: 20060211, end: 20060223
  2. PROGRAF [Suspect]
     Indication: GRAFT VERSUS HOST DISEASE
     Dosage: 0 MG, D, ORAL; MG, D, ORAL; 2 MG, BID, ORAL
     Route: 048
     Dates: start: 20060224, end: 20060319
  3. PROGRAF [Suspect]
     Indication: GRAFT VERSUS HOST DISEASE
     Dosage: 0 MG, D, ORAL; MG, D, ORAL; 2 MG, BID, ORAL
     Route: 048
     Dates: start: 20060320
  4. SIROLIMUS(SIROLIMUS) [Suspect]
     Indication: GRAFT VERSUS HOST DISEASE
     Dosage: 1 MG, BID, ORAL
     Route: 048
     Dates: start: 20060320, end: 20060327
  5. VALTREX [Suspect]
     Indication: GRAFT VERSUS HOST DISEASE
     Dosage: BID, ORAL
     Route: 048
     Dates: start: 20060313, end: 20060404
  6. BISOPROLOL FUMARATE [Concomitant]
  7. ZOCOR [Concomitant]
  8. CIPROFLOXACIN HCL [Concomitant]
  9. COTRIM [Concomitant]
  10. PANTOPRAZOLE SODIUM [Concomitant]
  11. LASIX [Concomitant]
  12. DECORTIN (PREDNISONE) [Concomitant]
  13. CELLCEPT [Concomitant]
  14. ALLOPURINOL [Concomitant]

REACTIONS (4)
  - BLOOD BILIRUBIN INCREASED [None]
  - CHOLESTASIS [None]
  - PULMONARY SEPSIS [None]
  - TRANSAMINASES INCREASED [None]
